FAERS Safety Report 9289545 (Version 3)
Quarter: 2014Q2

REPORT INFORMATION
  Report Type: Spontaneous
  Country: US (occurrence: US)
  Receive Date: 20130515
  Receipt Date: 20140502
  Transmission Date: 20141212
  Serious: Yes (Death, Hospitalization, Other)
  Sender: FDA-Public Use
  Company Number: US-B.I. PHARMACEUTICALS,INC./RIDGEFIELD-2013-BI-13386BP

PATIENT
  Age: 94 Year
  Sex: Female
  Weight: 84.37 kg

DRUGS (9)
  1. PRADAXA [Suspect]
     Indication: ATRIAL FIBRILLATION
     Dosage: 150 MG
     Route: 065
     Dates: start: 20110414, end: 20110420
  2. LOW DOSE ASPIRIN [Concomitant]
     Dosage: 81 MG
     Route: 048
  3. BETIMOL [Concomitant]
     Route: 048
  4. CARDIZEM [Concomitant]
     Dosage: 180 MG
     Route: 048
  5. LASIX [Concomitant]
     Dosage: 40 MG
     Route: 048
  6. NITROGLYCERIN [Concomitant]
     Route: 065
  7. PROAIR HFA [Concomitant]
     Route: 065
  8. XALATAN [Concomitant]
     Route: 065
  9. ZAROXOLYN [Concomitant]
     Dosage: 2.5 MG
     Route: 048

REACTIONS (7)
  - Upper gastrointestinal haemorrhage [Fatal]
  - Myocardial infarction [Fatal]
  - Coagulopathy [Unknown]
  - Respiratory failure [Unknown]
  - Renal failure acute [Unknown]
  - Haemorrhagic stroke [Unknown]
  - Cerebral haemorrhage [Unknown]
